FAERS Safety Report 7952255-4 (Version None)
Quarter: 2011Q4

REPORT INFORMATION
  Report Type: 
  Country: None (occurrence: None)
  Receive Date: 20111201
  Receipt Date: 20111128
  Transmission Date: 20120403
  Serious: Yes (Other)
  Sender: FDA-Public Use
  Company Number: CA-PFIZER INC-2011289896

PATIENT
  Sex: Male

DRUGS (3)
  1. ATIVAN [Concomitant]
     Dosage: UNK
  2. ZIPRASIDONE HYDROCHLORIDE [Suspect]
     Dosage: 120 MG, 1X/DAY
     Dates: start: 20111101, end: 20111101
  3. LITHIUM [Concomitant]

REACTIONS (5)
  - SOMNOLENCE [None]
  - DRUG INTOLERANCE [None]
  - ABNORMAL BEHAVIOUR [None]
  - SCREAMING [None]
  - PERSONALITY CHANGE [None]
